FAERS Safety Report 4742608-X (Version None)
Quarter: 2005Q3

REPORT INFORMATION
  Report Type: 
  Country: None (occurrence: None)
  Receive Date: 20050811
  Receipt Date: 20050804
  Transmission Date: 20060218
  Serious: Yes (Hospitalization)
  Sender: FDA-Public Use
  Company Number: DK-SANOFI-SYNTHELABO-F01200501470

PATIENT
  Sex: Female

DRUGS (2)
  1. OXALIPLATIN [Suspect]
     Indication: COLON CANCER
     Route: 042
     Dates: start: 20050729, end: 20050729
  2. XELODA [Concomitant]
     Indication: COLON CANCER
     Route: 048
     Dates: start: 20050527

REACTIONS (4)
  - ASTHENIA [None]
  - CHOKING SENSATION [None]
  - PARAESTHESIA [None]
  - SPEECH DISORDER [None]
